FAERS Safety Report 5811396-8 (Version None)
Quarter: 2008Q3

REPORT INFORMATION
  Report Type: 
  Country: None (occurrence: None)
  Receive Date: 20080714
  Receipt Date: 20080702
  Transmission Date: 20090109
  Serious: Yes (Other)
  Sender: FDA-Public Use
  Company Number: 2008017843

PATIENT
  Sex: Female

DRUGS (3)
  1. CETIRIZINE HCL [Suspect]
     Indication: NEURODERMATITIS
  2. SULTAMICILLIN (SULTAMICILLIN) [Concomitant]
  3. DEQUALINIUM (DEQUALINIUM) [Concomitant]

REACTIONS (6)
  - ABORTION SPONTANEOUS [None]
  - AMNIOTIC CAVITY INFECTION [None]
  - CYSTITIS [None]
  - DRUG EXPOSURE DURING PREGNANCY [None]
  - VAGINAL HAEMORRHAGE [None]
  - VAGINAL INFECTION [None]
